FAERS Safety Report 18954380 (Version 1)
Quarter: 2021Q1

REPORT INFORMATION
  Report Type: Spontaneous
  Country: US (occurrence: US)
  Receive Date: 20210301
  Receipt Date: 20210301
  Transmission Date: 20210420
  Serious: No
  Sender: FDA-Public Use
  Company Number: US-AMNEAL PHARMACEUTICALS-2020-AMRX-03539

PATIENT
  Age: 15 Year
  Sex: Female

DRUGS (2)
  1. ESTRADIOL TRANSDERMAL SYSTEM [Suspect]
     Active Substance: ESTRADIOL
     Indication: TURNER^S SYNDROME
     Dosage: UNK
     Route: 065
     Dates: start: 202009
  2. GENOTROPIN [Concomitant]
     Active Substance: SOMATROPIN
     Indication: HORMONE THERAPY
     Dosage: UNK
     Route: 065

REACTIONS (7)
  - Mood swings [Unknown]
  - Depressive symptom [Unknown]
  - Application site erythema [Unknown]
  - Product substitution issue [Unknown]
  - Migraine [Unknown]
  - Application site pruritus [Unknown]
  - Product use in unapproved indication [Unknown]

NARRATIVE: CASE EVENT DATE: 202009
